FAERS Safety Report 4323412-3 (Version None)
Quarter: 2004Q1

REPORT INFORMATION
  Report Type: 
  Country: None (occurrence: None)
  Receive Date: 20040325
  Receipt Date: 20040316
  Transmission Date: 20041129
  Serious: Yes (Hospitalization)
  Sender: FDA-Public Use
  Company Number: JP-GLAXOSMITHKLINE-B0327085A

PATIENT
  Age: 53 Year
  Sex: Male

DRUGS (5)
  1. VALTREX [Suspect]
     Indication: HERPES ZOSTER
     Dosage: 1000MG PER DAY
     Route: 048
     Dates: start: 20040312, end: 20040313
  2. GASTER D [Concomitant]
     Dosage: 20MG PER DAY
     Route: 048
  3. PRECIPITATED CALCIUM CARBONATE [Concomitant]
     Dosage: 1500MG PER DAY
     Route: 048
  4. RISUMIC [Concomitant]
     Route: 048
  5. DIALYSIS [Concomitant]

REACTIONS (4)
  - ASTHENIA [None]
  - DELIRIUM [None]
  - NERVOUS SYSTEM DISORDER [None]
  - SPEECH DISORDER [None]
